FAERS Safety Report 6608292-5 (Version None)
Quarter: 2010Q1

REPORT INFORMATION
  Report Type: 
  Country: None (occurrence: None)
  Receive Date: 20100223
  Receipt Date: 20100208
  Transmission Date: 20100710
  Serious: Yes (Other)
  Sender: FDA-Public Use
  Company Number: AUR-APL-2010-00460

PATIENT
  Age: 50 Year
  Sex: Male
  Weight: 68.0396 kg

DRUGS (13)
  1. METOPROLOL TARTRATE [Suspect]
  2. COLD REMEDY RAPID MELTS WITH VIT C. AND ECHINACEA [Suspect]
     Dosage: QID, ORAL
     Route: 048
     Dates: start: 20100105, end: 20100107
  3. ASPIRIN [Concomitant]
  4. MULTI-VITAMIN [Concomitant]
  5. VITAMIN E [Concomitant]
  6. AVALIDE [Concomitant]
  7. PLAVIX [Concomitant]
  8. ISOSORBIDE [Concomitant]
  9. LIPITOR [Concomitant]
  10. OMEPRAZOLE [Concomitant]
  11. ALLOPURINOL [Concomitant]
  12. SPIRIVA [Concomitant]
  13. IPRATOPIUM [Concomitant]

REACTIONS (1)
  - AGEUSIA [None]
